FAERS Safety Report 8281444-7 (Version None)
Quarter: 2012Q2

REPORT INFORMATION
  Report Type: 
  Country: None (occurrence: None)
  Receive Date: 20120413
  Receipt Date: 20120405
  Transmission Date: 20120825
  Serious: Yes (Hospitalization)
  Sender: FDA-Public Use
  Company Number: GR-B.I. PHARMACEUTICALS,INC./RIDGEFIELD-2012-EU-01984GB

PATIENT
  Age: 72 Year
  Sex: Male

DRUGS (3)
  1. INDERAL [Concomitant]
     Indication: HYPERTENSION
  2. SINTROM [Concomitant]
     Indication: ATRIAL FIBRILLATION
  3. PRADAXA [Suspect]
     Indication: ATRIAL FIBRILLATION
     Dosage: 220 MG
     Route: 048
     Dates: start: 20120201, end: 20120301

REACTIONS (2)
  - PARESIS [None]
  - EMBOLIC STROKE [None]
